FAERS Safety Report 7735038-X (Version None)
Quarter: 2011Q3

REPORT INFORMATION
  Report Type: 
  Country: None (occurrence: None)
  Receive Date: 20110907
  Receipt Date: 20110901
  Transmission Date: 20111222
  Serious: No
  Sender: FDA-Public Use
  Company Number: US-BAYER-2011-080992

PATIENT
  Sex: Female

DRUGS (1)
  1. MIRENA [Suspect]
     Indication: PRODUCT USED FOR UNKNOWN INDICATION
     Dosage: 20 MCG/24HR, CONT
     Route: 015

REACTIONS (7)
  - UNEVALUABLE EVENT [None]
  - MUSCLE SPASMS [None]
  - DEPRESSION [None]
  - SENSATION OF PRESSURE [None]
  - MEDICAL DEVICE COMPLICATION [None]
  - SCIATIC NERVE NEUROPATHY [None]
  - LIBIDO DECREASED [None]
